FAERS Safety Report 10698003 (Version 7)
Quarter: 2015Q3

REPORT INFORMATION
  Report Type: Report from Study
  Country: US (occurrence: US)
  Receive Date: 20150108
  Receipt Date: 20150818
  Transmission Date: 20151125
  Serious: Yes (Hospitalization, Other)
  Sender: FDA-Public Use
  Company Number: US-SA-2014SA158897

PATIENT
  Age: 56 Year
  Sex: Female

DRUGS (4)
  1. AVONEX [Concomitant]
     Active Substance: INTERFERON BETA-1A
     Dates: start: 19910101, end: 20141001
  2. AUBAGIO [Suspect]
     Active Substance: TERIFLUNOMIDE
     Indication: MULTIPLE SCLEROSIS
     Route: 048
     Dates: start: 20140825
  3. AUBAGIO [Suspect]
     Active Substance: TERIFLUNOMIDE
     Indication: MULTIPLE SCLEROSIS
     Route: 048
     Dates: start: 20141112
  4. AUBAGIO [Suspect]
     Active Substance: TERIFLUNOMIDE
     Indication: MULTIPLE SCLEROSIS
     Route: 048
     Dates: start: 20140929

REACTIONS (15)
  - Mobility decreased [Unknown]
  - Alopecia [Recovered/Resolved]
  - Unevaluable event [Recovered/Resolved]
  - Sensory loss [Recovered/Resolved]
  - Blood glucose increased [Unknown]
  - Muscular weakness [Recovering/Resolving]
  - Feeling abnormal [Unknown]
  - Head discomfort [Unknown]
  - Blood pressure increased [Unknown]
  - Abnormal dreams [Unknown]
  - Depression [Unknown]
  - Influenza [Recovered/Resolved]
  - Multiple sclerosis relapse [Recovered/Resolved]
  - Asthenia [Unknown]
  - Memory impairment [Unknown]

NARRATIVE: CASE EVENT DATE: 201412
